FAERS Safety Report 22362563 (Version 1)
Quarter: 2023Q2

REPORT INFORMATION
  Report Type: Spontaneous
  Country: TR (occurrence: TR)
  Receive Date: 20230524
  Receipt Date: 20230524
  Transmission Date: 20230722
  Serious: Yes (Death, Hospitalization)
  Sender: FDA-Public Use
  Company Number: TR-APIL-2315124US

PATIENT
  Sex: Female

DRUGS (1)
  1. BOTULINUM TOXIN TYPE A [Suspect]
     Active Substance: BOTULINUM TOXIN TYPE A
     Indication: Gastric operation
     Dosage: UNK, SINGLE

REACTIONS (3)
  - Condition aggravated [Fatal]
  - Off label use [Unknown]
  - Off label use [Unknown]
